FAERS Safety Report 17911724 (Version 2)
Quarter: 2020Q3

REPORT INFORMATION
  Report Type: Report from Study
  Country: None (occurrence: US)
  Receive Date: 20200618
  Receipt Date: 20200816
  Transmission Date: 20201103
  Serious: Yes (Hospitalization)
  Sender: FDA-Public Use
  Company Number: US-ABBVIE-20K-163-3443722-00

PATIENT
  Sex: Female

DRUGS (1)
  1. HUMIRA [Suspect]
     Active Substance: ADALIMUMAB
     Indication: RHEUMATOID ARTHRITIS
     Route: 058

REACTIONS (12)
  - Wound haemorrhage [Unknown]
  - Rib fracture [Unknown]
  - Fatigue [Unknown]
  - Effusion [Unknown]
  - Musculoskeletal chest pain [Unknown]
  - Animal scratch [Unknown]
  - Bone contusion [Unknown]
  - Dry mouth [Unknown]
  - Humidity intolerance [Unknown]
  - Arthralgia [Recovering/Resolving]
  - Animal bite [Unknown]
  - Osteoporosis [Unknown]

NARRATIVE: CASE EVENT DATE: 2020
